FAERS Safety Report 13768290 (Version 2)
Quarter: 2018Q1

REPORT INFORMATION
  Report Type: Spontaneous
  Country: AT (occurrence: AT)
  Receive Date: 20170719
  Receipt Date: 20180126
  Transmission Date: 20180508
  Serious: Yes (Other)
  Sender: FDA-Public Use
  Company Number: AT-TEVA-787160ISR

PATIENT
  Age: 36 Year
  Sex: Male

DRUGS (6)
  1. MIRTABENE [Suspect]
     Active Substance: MIRTAZAPINE
     Route: 065
     Dates: start: 20161123, end: 20161130
  2. BRINTELLIX [Concomitant]
     Active Substance: VORTIOXETINE HYDROBROMIDE
     Dates: start: 20161026, end: 20161124
  3. BRINTELLIX [Concomitant]
     Active Substance: VORTIOXETINE HYDROBROMIDE
     Dates: start: 20161125, end: 20161130
  4. SEROQUEL [Suspect]
     Active Substance: QUETIAPINE FUMARATE
     Route: 065
     Dates: start: 20161107
  5. PREGABALIN. [Suspect]
     Active Substance: PREGABALIN
     Route: 065
     Dates: start: 20161123
  6. IXEL [Suspect]
     Active Substance: MILNACIPRAN HYDROCHLORIDE
     Route: 065
     Dates: start: 20161124, end: 20161128

REACTIONS (1)
  - Anorgasmia [Recovered/Resolved]

NARRATIVE: CASE EVENT DATE: 20161125
